FAERS Safety Report 7146267-0 (Version None)
Quarter: 2010Q4

REPORT INFORMATION
  Report Type: 
  Country: None (occurrence: None)
  Receive Date: 20101208
  Receipt Date: 20101125
  Transmission Date: 20110411
  Serious: Yes (Hospitalization)
  Sender: FDA-Public Use
  Company Number: SE-ACTELION-A-CH2010-42037

PATIENT
  Sex: Male

DRUGS (1)
  1. BOSENTAN TABLET UNKNOWN  EU MG [Suspect]
     Indication: PULMONARY ARTERIAL HYPERTENSION
     Dosage: UNK
     Route: 048
     Dates: end: 20100701

REACTIONS (1)
  - TRANSPLANT [None]
